FAERS Safety Report 8805906 (Version 2)
Quarter: 2012Q4

REPORT INFORMATION
  Report Type: Spontaneous
  Country: US (occurrence: None)
  Receive Date: 20120918
  Receipt Date: 20121024
  Transmission Date: 20130627
  Serious: Yes (Other)
  Sender: FDA-Public Use
  Company Number: JPI-P-025141

PATIENT
  Sex: Female

DRUGS (4)
  1. XYREM [Suspect]
     Indication: CATAPLEXY
     Route: 048
     Dates: start: 2006
  2. MODAFINIL [Concomitant]
  3. PRAMIPRXOLE DIHYDROCHLORIDE [Concomitant]
  4. VENLAFAXINE HYDROCHLORIDE [Concomitant]

REACTIONS (2)
  - Anaphylactic reaction [None]
  - Angioedema [None]
